FAERS Safety Report 8709106 (Version 4)
Quarter: 2013Q4

REPORT INFORMATION
  Report Type: Spontaneous
  Country: ES (occurrence: ES)
  Receive Date: 20120806
  Receipt Date: 20131031
  Transmission Date: 20140711
  Serious: Yes (Other)
  Sender: FDA-Public Use
  Company Number: ES-009507513-1208ESP000527

PATIENT
  Age: 38 Year
  Sex: Female

DRUGS (2)
  1. ORGALUTRAN [Suspect]
     Indication: OVULATION INDUCTION
     Route: 058
  2. UTROGESTAN [Concomitant]
     Dosage: UNK MG, UNK
     Route: 065

REACTIONS (1)
  - Multiple sclerosis relapse [Unknown]
